FAERS Safety Report 6602411-2 (Version None)
Quarter: 2010Q1

REPORT INFORMATION
  Report Type: 
  Country: None (occurrence: None)
  Receive Date: 20100225
  Receipt Date: 20100218
  Transmission Date: 20100710
  Serious: Yes (Other)
  Sender: FDA-Public Use
  Company Number: B0636019A

PATIENT
  Age: 53 Year
  Sex: Male

DRUGS (1)
  1. AUGMENTIN [Suspect]
     Indication: TOOTH INFECTION
     Dosage: 875MG THREE TIMES PER DAY
     Route: 048
     Dates: start: 20091203, end: 20091217

REACTIONS (2)
  - CHOLURIA [None]
  - HEPATITIS [None]
